FAERS Safety Report 9312059 (Version 3)
Quarter: 2013Q3

REPORT INFORMATION
  Report Type: Spontaneous
  Country: JP (occurrence: JP)
  Receive Date: 20130528
  Receipt Date: 20130705
  Transmission Date: 20140515
  Serious: Yes (Hospitalization, Other)
  Sender: FDA-Public Use
  Company Number: JP-PFIZER INC-2013157658

PATIENT
  Age: 33 Year
  Sex: Male

DRUGS (3)
  1. UNASYN-S [Suspect]
     Indication: PNEUMONIA
     Route: 042
  2. DALACIN [Suspect]
     Indication: PNEUMONIA
     Route: 042
  3. CIPROFLOXACIN [Suspect]
     Indication: PNEUMONIA
     Route: 042

REACTIONS (2)
  - Respiratory failure [Recovering/Resolving]
  - Rash [Recovering/Resolving]
